FAERS Safety Report 6218222-6 (Version None)
Quarter: 2009Q2

REPORT INFORMATION
  Report Type: 
  Country: None (occurrence: None)
  Receive Date: 20090608
  Receipt Date: 20090603
  Transmission Date: 20091009
  Serious: Yes (Death)
  Sender: FDA-Public Use
  Company Number: JP-AVENTIS-200911545JP

PATIENT
  Age: 10 Month
  Sex: Male

DRUGS (5)
  1. CLAFORAN [Suspect]
     Route: 041
     Dates: start: 20080101, end: 20080101
  2. MEROPEN [Suspect]
     Route: 041
     Dates: start: 20080101, end: 20080101
  3. ROCEPHIN [Suspect]
     Route: 041
     Dates: start: 20080101, end: 20080101
  4. MIRACLID [Concomitant]
     Route: 041
     Dates: start: 20080101, end: 20080101
  5. FAMOTIDINE [Concomitant]
     Route: 041
     Dates: start: 20080101, end: 20080101

REACTIONS (4)
  - DRUG RASH WITH EOSINOPHILIA AND SYSTEMIC SYMPTOMS [None]
  - EOSINOPHILIA [None]
  - HEPATITIS FULMINANT [None]
  - PYREXIA [None]
